FAERS Safety Report 10176128 (Version 2)
Quarter: 2014Q2

REPORT INFORMATION
  Report Type: Spontaneous
  Country: US (occurrence: US)
  Receive Date: 20140516
  Receipt Date: 20140516
  Transmission Date: 20141212
  Serious: No
  Sender: FDA-Public Use
  Company Number: US-PFIZER INC-2011067227

PATIENT
  Age: 61 Year
  Sex: Female

DRUGS (12)
  1. LIPITOR [Suspect]
     Dosage: UNK
  2. ELAVIL [Suspect]
     Dosage: UNK
  3. PAXIL [Suspect]
     Dosage: UNK
  4. ZOMIG [Suspect]
     Dosage: UNK
  5. PRISTIQ [Concomitant]
     Dosage: 50 MG, 1X/DAY
  6. LYRICA [Concomitant]
     Dosage: 75 MG, 1X/DAY
  7. NEXIUM [Concomitant]
     Dosage: UNK
  8. QUETIAPINE [Concomitant]
     Dosage: UNK
  9. TOPAMAX [Concomitant]
     Dosage: UNK
  10. BENICAR [Concomitant]
     Dosage: UNK
  11. ZYPREXA [Concomitant]
     Dosage: UNK
  12. ULTRAM [Concomitant]
     Dosage: UNK

REACTIONS (1)
  - Drug hypersensitivity [Unknown]
